FAERS Safety Report 18789523 (Version 3)
Quarter: 2021Q1

REPORT INFORMATION
  Report Type: Spontaneous
  Country: US (occurrence: US)
  Receive Date: 20210125
  Receipt Date: 20210226
  Transmission Date: 20210419
  Serious: Yes (Hospitalization, Other)
  Sender: FDA-Public Use
  Company Number: US-DRREDDYS-USA/USA/21/0131250

PATIENT
  Age: 44 Year
  Sex: Male

DRUGS (24)
  1. BUDESONIDE. [Suspect]
     Active Substance: BUDESONIDE
     Indication: GRAFT VERSUS HOST DISEASE
  2. PREDNISONE. [Suspect]
     Active Substance: PREDNISONE
     Indication: PROPHYLAXIS AGAINST GRAFT VERSUS HOST DISEASE
  3. PREDNISONE. [Suspect]
     Active Substance: PREDNISONE
     Dosage: DECREASED TO 1.5 MG/KG PER DAY ON DAY 63
  4. THYMOGLOBULIN [Suspect]
     Active Substance: LAPINE T-LYMPHOCYTE IMMUNE GLOBULIN
     Indication: GRAFT VERSUS HOST DISEASE
     Dosage: BETWEEN DAY 63 AND DAY 75
  5. TACROLIMUS. [Suspect]
     Active Substance: TACROLIMUS
     Indication: GRAFT VERSUS HOST DISEASE
  6. HYDROCORTISONE. [Suspect]
     Active Substance: HYDROCORTISONE
     Indication: PROPHYLAXIS AGAINST GRAFT VERSUS HOST DISEASE
  7. PREDNISONE. [Suspect]
     Active Substance: PREDNISONE
     Dosage: ON DAY 41, DOSE WAS INCREASED TO 2.0 MG/KG/DAY
  8. PREDNISONE. [Suspect]
     Active Substance: PREDNISONE
     Dosage: ON DAY 45, THE DOSE WAS DECREASED TO 1.0 MG/KG/DAY
  9. PREDNISONE. [Suspect]
     Active Substance: PREDNISONE
     Dosage: BETWEEN DAY 56 AND DAY 61, PREDNISONE DOSE WAS TAPERED BY 0.2 MG/KG EVERY 3 DAYS
  10. PREDNISONE. [Suspect]
     Active Substance: PREDNISONE
     Dosage: DECREASED TO 1.0 MG/KG PER DAY ON DAY 65 TO DECREASE THE RISK OF OPPORTUNISTIC INFECTION
  11. PREDNISONE. [Suspect]
     Active Substance: PREDNISONE
  12. PREDNISONE. [Suspect]
     Active Substance: PREDNISONE
  13. PREDNISONE. [Suspect]
     Active Substance: PREDNISONE
  14. TACROLIMUS. [Suspect]
     Active Substance: TACROLIMUS
     Indication: IMMUNOSUPPRESSANT DRUG THERAPY
  15. MYCOPHENOLATE MOFETIL. [Suspect]
     Active Substance: MYCOPHENOLATE MOFETIL
     Indication: IMMUNOSUPPRESSION
  16. SIROLIMUS. [Suspect]
     Active Substance: SIROLIMUS
     Indication: GRAFT VERSUS HOST DISEASE
  17. BECLOMETHASONE [Suspect]
     Active Substance: BECLOMETHASONE
     Indication: PROPHYLAXIS AGAINST GRAFT VERSUS HOST DISEASE
  18. PREDNISONE. [Suspect]
     Active Substance: PREDNISONE
     Dosage: AT 17 MONTHS AFTER HCT
  19. BECLOMETHASONE [Suspect]
     Active Substance: BECLOMETHASONE
     Indication: GRAFT VERSUS HOST DISEASE
     Route: 048
  20. DAPSONE. [Concomitant]
     Active Substance: DAPSONE
     Indication: PROPHYLAXIS AGAINST GRAFT VERSUS HOST DISEASE
  21. PREDNISONE. [Suspect]
     Active Substance: PREDNISONE
     Dosage: ON DAY 48, DOSE WAS INCREASED TO 2.0 MG/KG/DAY
  22. PREDNISONE. [Suspect]
     Active Substance: PREDNISONE
     Dosage: INCREASE IN DOSE TO 2 MG/KG/DAY DAY WITHOUT IMPROVEMENT
  23. ACICLOVIR [Concomitant]
     Active Substance: ACYCLOVIR
     Indication: OPPORTUNISTIC INFECTION PROPHYLAXIS
  24. DAPSONE. [Concomitant]
     Active Substance: DAPSONE
     Indication: OPPORTUNISTIC INFECTION PROPHYLAXIS

REACTIONS (4)
  - Adenovirus infection [Recovered/Resolved]
  - Thrombotic microangiopathy [Unknown]
  - Drug ineffective [Unknown]
  - Clostridium difficile infection [Unknown]
